FAERS Safety Report 9461191 (Version 1)
Quarter: 2013Q3

REPORT INFORMATION
  Report Type: Spontaneous
  Country: US (occurrence: None)
  Receive Date: 20130814
  Receipt Date: 20130814
  Transmission Date: 20140515
  Serious: Yes (Other)
  Sender: FDA-Public Use
  Company Number: None

PATIENT
  Age: 27 Year
  Sex: Female
  Weight: 66 kg

DRUGS (1)
  1. SUFENTA [Suspect]
     Indication: LABOUR PAIN
     Route: 042
     Dates: start: 20130703

REACTIONS (2)
  - Respiratory depression [None]
  - Medication error [None]
